FAERS Safety Report 21365381 (Version 1)
Quarter: 2022Q3

REPORT INFORMATION
  Report Type: Spontaneous
  Country: US (occurrence: US)
  Receive Date: 20220922
  Receipt Date: 20220922
  Transmission Date: 20221027
  Serious: No
  Sender: FDA-Public Use
  Company Number: US-PFIZER INC-202201177256

PATIENT

DRUGS (2)
  1. VYNDAMAX [Suspect]
     Active Substance: TAFAMIDIS
     Dosage: UNK
  2. COVID-19 VACCINE [Concomitant]
     Indication: COVID-19 immunisation
     Dosage: UNK

REACTIONS (1)
  - COVID-19 [Unknown]
